FAERS Safety Report 8632680 (Version 2)
Quarter: 2012Q4

REPORT INFORMATION
  Report Type: 
  Country: US (occurrence: US)
  Receive Date: 20120625
  Receipt Date: 20121031
  Transmission Date: 20130627
  Serious: Yes (Hospitalization)
  Sender: FDA-Public Use
  Company Number: US-BAYER-2012-061392

PATIENT
  Age: 44 Year
  Sex: Female
  Weight: 64.4 kg

DRUGS (11)
  1. YAZ [Suspect]
     Indication: CONTRACEPTION
     Dosage: UNK
     Dates: start: 2002, end: 2010
  2. YASMIN [Suspect]
     Indication: CONTRACEPTION
     Dosage: UNK
     Dates: start: 2002, end: 2010
  3. OCELLA [Suspect]
     Indication: CONTRACEPTION
     Dosage: UNK
     Dates: start: 2002, end: 2010
  4. VITAMINS [Concomitant]
  5. HERBAL PREPARATION [Concomitant]
  6. PEPCID [Concomitant]
  7. MOTRIN [Concomitant]
  8. NUVARING [Concomitant]
     Dosage: UNK
  9. TYLENOL NO. 3 [Concomitant]
  10. UNASYN [Concomitant]
  11. PRILOSEC [Concomitant]
     Dosage: 20 mg

REACTIONS (10)
  - Gallbladder disorder [None]
  - Cholecystitis chronic [None]
  - Injury [None]
  - Pain [None]
  - Anxiety [None]
  - Emotional distress [None]
  - General physical health deterioration [None]
  - Pain [None]
  - Gastric disorder [None]
  - Mental disorder [None]
